FAERS Safety Report 9410232 (Version 1)
Quarter: 2013Q3

REPORT INFORMATION
  Report Type: Spontaneous
  Country: ES (occurrence: ES)
  Receive Date: 20130719
  Receipt Date: 20130719
  Transmission Date: 20140515
  Serious: Yes (Other)
  Sender: FDA-Public Use
  Company Number: ES-BAYER-2013-085490

PATIENT
  Age: 62 Year
  Sex: Female

DRUGS (5)
  1. ADIRO 100 [Suspect]
     Dosage: 100 MG, UNK
     Route: 048
     Dates: start: 20130213
  2. CHONDROITIN SULFATE [Interacting]
     Dosage: 800 MG, UNK
     Route: 048
     Dates: start: 20130619, end: 20130628
  3. ENALAPRIL W/HYDROCHLOROTHIAZIDE [Concomitant]
     Dosage: 20 MG, UNK
     Dates: start: 2010
  4. SIMVASTATIN [Concomitant]
     Dosage: 10 MG, UNK
  5. PARACETAMOL [Concomitant]
     Dosage: 500 MG, UNK

REACTIONS (1)
  - Thrombocytopenia [Recovering/Resolving]
